FAERS Safety Report 10208224 (Version 4)
Quarter: 2014Q3

REPORT INFORMATION
  Report Type: Report from Study
  Country: AU (occurrence: AU)
  Receive Date: 20140530
  Receipt Date: 20140917
  Transmission Date: 20150326
  Serious: Yes (Other)
  Sender: FDA-Public Use
  Company Number: AU-GLAXOSMITHKLINE-B0997983A

PATIENT
  Age: 59 Year
  Sex: Female
  Weight: 96.4 kg

DRUGS (6)
  1. BISACODYL. [Concomitant]
     Active Substance: BISACODYL
     Dates: start: 2009
  2. ESOMEPRAZOLE [Concomitant]
     Active Substance: ESOMEPRAZOLE
     Dates: start: 1996
  3. KETOPROFEN. [Concomitant]
     Active Substance: KETOPROFEN
     Dates: start: 1996
  4. NICOTINE. [Suspect]
     Active Substance: NICOTINE
     Indication: EX-TOBACCO USER
     Dosage: 7MG PER DAY
     Route: 062
     Dates: start: 20131209, end: 20140227
  5. ATORVASTATIN [Concomitant]
     Active Substance: ATORVASTATIN
     Dates: start: 2005
  6. ASPIRIN. [Concomitant]
     Active Substance: ASPIRIN
     Dates: start: 2008

REACTIONS (1)
  - Aortic stenosis [Not Recovered/Not Resolved]

NARRATIVE: CASE EVENT DATE: 20140519
